FAERS Safety Report 9493368 (Version 2)
Quarter: 2013Q3

REPORT INFORMATION
  Report Type: Report from Study
  Country: CO (occurrence: CO)
  Receive Date: 20130902
  Receipt Date: 20130902
  Transmission Date: 20140515
  Serious: Yes (Hospitalization)
  Sender: FDA-Public Use
  Company Number: CO-ROCHE-1266387

PATIENT
  Sex: Female

DRUGS (1)
  1. XOLAIR [Suspect]
     Indication: ASTHMA
     Dosage: MEDICATION ERROR: ROUTE
     Route: 030
     Dates: start: 20120927, end: 20121120

REACTIONS (4)
  - Fatigue [Unknown]
  - Asthmatic crisis [Recovered/Resolved]
  - Maternal exposure during pregnancy [Unknown]
  - Incorrect route of drug administration [Unknown]
